FAERS Safety Report 6191327-4 (Version None)
Quarter: 2009Q2

REPORT INFORMATION
  Report Type: 
  Country: None (occurrence: None)
  Receive Date: 20090515
  Receipt Date: 20080513
  Transmission Date: 20091009
  Serious: Yes (Hospitalization)
  Sender: FDA-Public Use
  Company Number: US-ASTRAZENECA-2007UW01947

PATIENT
  Age: 12699 Day
  Sex: Female
  Weight: 95.3 kg

DRUGS (52)
  1. SEROQUEL [Suspect]
     Indication: DEPRESSION
     Dosage: 25 MG TO 200 MG
     Route: 048
     Dates: start: 20000907, end: 20060727
  2. SEROQUEL [Suspect]
     Indication: MOOD SWINGS
     Dosage: 25 MG TO 200 MG
     Route: 048
     Dates: start: 20000907, end: 20060727
  3. SEROQUEL [Suspect]
     Dosage: 25-200 MG
     Route: 048
     Dates: start: 20000307, end: 20050310
  4. SEROQUEL [Suspect]
     Dosage: 25-200 MG
     Route: 048
     Dates: start: 20000307, end: 20050310
  5. SEROQUEL [Suspect]
     Dosage: 25-200 MG
     Route: 048
     Dates: start: 20050818
  6. SEROQUEL [Suspect]
     Dosage: 25-200 MG
     Route: 048
     Dates: start: 20050818
  7. APRI [Concomitant]
     Route: 065
  8. AMBIEN [Concomitant]
     Route: 065
     Dates: start: 20041012
  9. ARTHROTEC [Concomitant]
     Route: 065
     Dates: start: 20050621
  10. DESOGEN [Concomitant]
     Route: 065
  11. DOCUSATE SODIUM [Concomitant]
     Route: 065
     Dates: start: 20040719
  12. DOCUSATE SODIUM [Concomitant]
     Route: 065
  13. DIFLUCAN [Concomitant]
     Route: 065
     Dates: start: 20011105
  14. ETODOLAC [Concomitant]
     Route: 065
     Dates: start: 20060117
  15. ESKALITH [Concomitant]
     Route: 065
     Dates: start: 20040831
  16. ESKALITH [Concomitant]
     Route: 065
  17. GEODON [Concomitant]
     Route: 065
  18. HALDOL [Concomitant]
     Route: 065
     Dates: start: 20010108
  19. LIDOCAINE [Concomitant]
     Route: 065
  20. LAMISIL [Concomitant]
     Route: 065
  21. LIPITOR [Concomitant]
     Route: 065
     Dates: start: 20070101
  22. LIPITOR [Concomitant]
     Route: 065
  23. LUNESTA [Concomitant]
     Route: 065
     Dates: start: 20060413
  24. LORAZEPAM [Concomitant]
     Route: 065
     Dates: start: 20030324
  25. METFORMIN HCL [Concomitant]
     Indication: DIABETES MELLITUS
     Route: 065
     Dates: start: 20011129
  26. METFORMIN HCL [Concomitant]
     Indication: POLYCYSTIC OVARIES
     Route: 065
     Dates: start: 20011129
  27. METFORMIN HCL [Concomitant]
     Dosage: 1000 MG - 1500 MG
     Route: 048
  28. METFORMIN HCL [Concomitant]
     Dosage: 1000 MG - 1500 MG
     Route: 048
  29. MIRTAZAPINE [Concomitant]
     Route: 065
     Dates: start: 20041008
  30. MOBIC [Concomitant]
     Route: 065
  31. NEURONTIN [Concomitant]
     Route: 065
     Dates: start: 20001115
  32. NAMENDA [Concomitant]
     Route: 065
  33. PROPRANOLOL [Concomitant]
     Route: 065
     Dates: start: 20050806
  34. RISPERDAL [Concomitant]
     Dosage: 1 - 2 MG
     Route: 065
     Dates: start: 19981116, end: 20040218
  35. STELAZINE [Concomitant]
     Route: 065
     Dates: start: 19900101
  36. SULINDAC [Concomitant]
     Route: 065
     Dates: start: 20030722
  37. SPIRONOLACTONE [Concomitant]
     Route: 065
  38. SYNTHROID [Concomitant]
     Dosage: 88 MCG
     Route: 065
  39. ULTRAM [Concomitant]
     Route: 065
     Dates: start: 20060426
  40. YASMIN [Concomitant]
     Route: 065
  41. ZITHROMAX [Concomitant]
     Route: 065
     Dates: start: 20050404
  42. ZYPREXA [Concomitant]
     Route: 065
     Dates: start: 19970508, end: 19981116
  43. PREVACID [Concomitant]
     Route: 065
     Dates: start: 20070123
  44. PENICILLIN VK [Concomitant]
     Route: 065
  45. DETROL [Concomitant]
     Route: 065
  46. TRIMOX [Concomitant]
     Route: 065
  47. PERIOSTAT [Concomitant]
     Route: 065
  48. TYLENOL [Concomitant]
     Indication: PAIN
     Route: 048
     Dates: start: 20010110
  49. TYLENOL [Concomitant]
     Indication: HEADACHE
     Route: 048
     Dates: start: 20010110
  50. KEFLEX [Concomitant]
     Route: 065
  51. VOLTAREN [Concomitant]
     Route: 065
  52. TRAMADOL HCL [Concomitant]
     Route: 065

REACTIONS (25)
  - ACANTHOSIS [None]
  - ARTHRALGIA [None]
  - BLOOD CHOLESTEROL INCREASED [None]
  - BLOOD TRIGLYCERIDES INCREASED [None]
  - CHEST PAIN [None]
  - CONSTIPATION [None]
  - DYSPNOEA [None]
  - FRACTURE [None]
  - HEADACHE [None]
  - HYPERPROLACTINAEMIA [None]
  - HYPERTHYROIDISM [None]
  - INFLAMMATION [None]
  - INSOMNIA [None]
  - LEIOMYOMA [None]
  - OBESITY [None]
  - OSTEOARTHRITIS [None]
  - PAIN IN EXTREMITY [None]
  - PATELLOFEMORAL PAIN SYNDROME [None]
  - REFLUX GASTRITIS [None]
  - REFLUX OESOPHAGITIS [None]
  - SCHIZOAFFECTIVE DISORDER BIPOLAR TYPE [None]
  - STRESS FRACTURE [None]
  - TACHYCARDIA [None]
  - TYPE 2 DIABETES MELLITUS [None]
  - WEIGHT INCREASED [None]
